FAERS Safety Report 7431035-2 (Version None)
Quarter: 2011Q2

REPORT INFORMATION
  Report Type: 
  Country: None (occurrence: None)
  Receive Date: 20110421
  Receipt Date: 20110404
  Transmission Date: 20111010
  Serious: No
  Sender: FDA-Public Use
  Company Number: US-B.I. PHARMACEUTICALS,INC./RIDGEFIELD-2011-BP-09977BP

PATIENT
  Sex: Male

DRUGS (1)
  1. TWYNSTA [Suspect]
     Route: 048
     Dates: start: 20110301

REACTIONS (8)
  - HYPERHIDROSIS [None]
  - HEADACHE [None]
  - CHILLS [None]
  - NERVOUSNESS [None]
  - BACK PAIN [None]
  - INSOMNIA [None]
  - TREMOR [None]
  - DIZZINESS [None]
